FAERS Safety Report 10518881 (Version 2)
Quarter: 2015Q3

REPORT INFORMATION
  Report Type: Spontaneous
  Country: JP (occurrence: JP)
  Receive Date: 20141015
  Receipt Date: 20150707
  Transmission Date: 20151125
  Serious: Yes (Other)
  Sender: FDA-Public Use
  Company Number: JP-JNJFOC-20141008000

PATIENT

DRUGS (3)
  1. SOVRIAD [Suspect]
     Active Substance: SIMEPREVIR
     Indication: PRODUCT USED FOR UNKNOWN INDICATION
     Route: 048
     Dates: start: 201403
  2. PEGINTERFERON ALFA-2A [Concomitant]
     Active Substance: PEGINTERFERON ALFA-2A
     Route: 058
     Dates: start: 201403
  3. RIBAVIRIN. [Concomitant]
     Active Substance: RIBAVIRIN
     Route: 048
     Dates: start: 201403

REACTIONS (1)
  - Red blood cell count decreased [Unknown]
